FAERS Safety Report 19630357 (Version 1)
Quarter: 2021Q3

REPORT INFORMATION
  Report Type: Spontaneous
  Country: US (occurrence: US)
  Receive Date: 20210729
  Receipt Date: 20210729
  Transmission Date: 20211014
  Serious: No
  Sender: FDA-Public Use
  Company Number: US-MYLANLABS-2021M1042902

PATIENT
  Sex: Female

DRUGS (1)
  1. ESTRADIOL TRANSDERMAL SYSTEM [Suspect]
     Active Substance: ESTRADIOL
     Indication: HORMONE REPLACEMENT THERAPY
     Dosage: 0.075 MILLIGRAM, QD (TWICE?WEEKLY)
     Route: 062

REACTIONS (7)
  - Application site swelling [Unknown]
  - Wrong technique in product usage process [Unknown]
  - Application site erythema [Not Recovered/Not Resolved]
  - Application site scar [Unknown]
  - Product adhesion issue [Not Recovered/Not Resolved]
  - Application site pruritus [Not Recovered/Not Resolved]
  - Application site papules [Unknown]
